FAERS Safety Report 4386098-8 (Version None)
Quarter: 2004Q2

REPORT INFORMATION
  Report Type: 
  Country: None (occurrence: None)
  Receive Date: 20040625
  Receipt Date: 20040625
  Transmission Date: 20050107
  Serious: Yes (Hospitalization)
  Sender: FDA-Public Use
  Company Number: None

PATIENT
  Age: 52 Year
  Sex: Female
  Weight: 109.7705 kg

DRUGS (21)
  1. GEMCITABINE [Suspect]
     Indication: METASTATIC CARCINOMA OF THE BLADDER
     Dosage: 1000MG/M2
     Dates: start: 20040324
  2. GEMCITABINE [Suspect]
     Indication: METASTATIC CARCINOMA OF THE BLADDER
     Dosage: 1000MG/M2
     Dates: start: 20040331
  3. GEMCITABINE [Suspect]
     Indication: METASTATIC CARCINOMA OF THE BLADDER
     Dosage: 1000MG/M2
     Dates: start: 20040414
  4. GEMCITABINE [Suspect]
     Indication: METASTATIC CARCINOMA OF THE BLADDER
     Dosage: 1000MG/M2
     Dates: start: 20040421
  5. GEMCITABINE [Suspect]
     Indication: METASTATIC CARCINOMA OF THE BLADDER
     Dosage: 1000MG/M2
     Dates: start: 20040512
  6. GEMCITABINE [Suspect]
     Indication: METASTATIC CARCINOMA OF THE BLADDER
     Dosage: 1000MG/M2
     Dates: start: 20040602
  7. GEMCITABINE [Suspect]
     Indication: METASTATIC CARCINOMA OF THE BLADDER
     Dosage: 1000MG/M2
     Dates: start: 20040609
  8. CARBOPLATIN [Suspect]
     Indication: METASTATIC CARCINOMA OF THE BLADDER
     Dosage: AUC 5
     Dates: start: 20040324
  9. CARBOPLATIN [Suspect]
     Indication: METASTATIC CARCINOMA OF THE BLADDER
     Dosage: AUC 5
     Dates: start: 20040414
  10. CARBOPLATIN [Suspect]
     Indication: METASTATIC CARCINOMA OF THE BLADDER
     Dosage: AUC 5
     Dates: start: 20040512
  11. CARBOPLATIN [Suspect]
     Indication: METASTATIC CARCINOMA OF THE BLADDER
     Dosage: AUC 5
     Dates: start: 20040602
  12. SYNTHROID [Concomitant]
  13. NORVASC [Concomitant]
  14. LISINOPRIL [Concomitant]
  15. COUMADIN [Concomitant]
  16. GENERIC ZANTAC [Concomitant]
  17. OXYCONTIN [Concomitant]
  18. OXYCODONE [Concomitant]
  19. M.V.I. [Concomitant]
  20. PYRIDIUM [Concomitant]
  21. PRANDIN [Concomitant]

REACTIONS (4)
  - CENTRAL LINE INFECTION [None]
  - DISEASE RECURRENCE [None]
  - PSEUDOMONAL BACTERAEMIA [None]
  - URINARY TRACT INFECTION PSEUDOMONAL [None]
